APPROVED DRUG PRODUCT: SEVELAMER CARBONATE
Active Ingredient: SEVELAMER CARBONATE
Strength: 800MG/PACKET
Dosage Form/Route: FOR SUSPENSION;ORAL
Application: A210464 | Product #001 | TE Code: AB
Applicant: DR REDDYS LABORATORIES LTD
Approved: Oct 25, 2018 | RLD: No | RS: No | Type: RX